FAERS Safety Report 4314681-4 (Version None)
Quarter: 2004Q1

REPORT INFORMATION
  Report Type: 
  Country: None (occurrence: None)
  Receive Date: 20040308
  Receipt Date: 20040226
  Transmission Date: 20041129
  Serious: Yes (Hospitalization)
  Sender: FDA-Public Use
  Company Number: FR-JNJFOC-20040300002

PATIENT
  Age: 41 Year
  Sex: Female

DRUGS (4)
  1. TRAMADOL HCL [Suspect]
     Indication: NECK PAIN
     Dosage: 50 MG, 1 IN 1 DAY, ORAL
     Route: 048
     Dates: start: 20001101, end: 20001104
  2. PROZAC [Suspect]
     Dosage: ORAL
     Route: 048
     Dates: end: 20001104
  3. LEXOMIL ROCHE (BROMAZEPAM) [Suspect]
     Dosage: ORAL
     Route: 048
     Dates: end: 20001104
  4. PIROXICAM [Concomitant]

REACTIONS (5)
  - COMA [None]
  - DRUG INTERACTION [None]
  - HAEMOLYTIC ANAEMIA [None]
  - HYPONATRAEMIA [None]
  - SOMNOLENCE [None]
